FAERS Safety Report 8305041-X (Version None)
Quarter: 2012Q2

REPORT INFORMATION
  Report Type: 
  Country: None (occurrence: None)
  Receive Date: 20120423
  Receipt Date: 20120419
  Transmission Date: 20120825
  Serious: Yes (Hospitalization, Other)
  Sender: FDA-Public Use
  Company Number: CN-ROCHE-1061421

PATIENT
  Sex: Male
  Weight: 50 kg

DRUGS (3)
  1. CORTICOSTEROID NOS [Suspect]
     Indication: LUNG INFECTION
     Dates: start: 20110419, end: 20110525
  2. PREDNISONE TAB [Concomitant]
     Indication: RENAL TRANSPLANT
     Route: 048
     Dates: start: 20100910, end: 20111001
  3. MYCOPHENOLATE MOFETIL (CELLCEPT) [Suspect]
     Indication: RENAL TRANSPLANT
     Route: 048
     Dates: start: 20100910

REACTIONS (2)
  - LUNG INFECTION [None]
  - OSTEONECROSIS [None]
